FAERS Safety Report 7314884-0 (Version None)
Quarter: 2011Q1

REPORT INFORMATION
  Report Type: 
  Country: None (occurrence: None)
  Receive Date: 20110225
  Receipt Date: 20100115
  Transmission Date: 20110831
  Serious: No
  Sender: FDA-Public Use
  Company Number: US-MYLANLABS-2010S1000922

PATIENT
  Age: 14 Year
  Sex: Female

DRUGS (4)
  1. ELAVIL [Concomitant]
     Dates: start: 20090901
  2. AMNESTEEM [Suspect]
     Indication: ACNE
     Route: 048
     Dates: start: 20090521, end: 20091117
  3. CALCIUM [Concomitant]
  4. MULTI-VITAMINS [Concomitant]

REACTIONS (2)
  - PERSONALITY CHANGE [None]
  - IRRITABILITY [None]
